FAERS Safety Report 6076151-5 (Version None)
Quarter: 2009Q1

REPORT INFORMATION
  Report Type: 
  Country: None (occurrence: None)
  Receive Date: 20090212
  Receipt Date: 20090203
  Transmission Date: 20090719
  Serious: Yes (Death)
  Sender: FDA-Public Use
  Company Number: CA-B.I. PHARMACEUTICALS,INC./RIDGEFIELD-2009-CN-00089CN

PATIENT

DRUGS (1)
  1. MOBICOX [Suspect]

REACTIONS (1)
  - CARDIAC FAILURE [None]
